FAERS Safety Report 13044656 (Version 1)
Quarter: 2016Q4

REPORT INFORMATION
  Report Type: Spontaneous
  Country: US (occurrence: US)
  Receive Date: 20161220
  Receipt Date: 20161220
  Transmission Date: 20170207
  Serious: No
  Sender: FDA-Public Use
  Company Number: US-ROCHE-1017741

PATIENT
  Sex: Male
  Weight: 104.42 kg

DRUGS (3)
  1. ZELBORAF [Suspect]
     Active Substance: VEMURAFENIB
     Indication: METASTATIC MALIGNANT MELANOMA
     Route: 048
     Dates: start: 20111017
  2. ZELBORAF [Suspect]
     Active Substance: VEMURAFENIB
     Route: 048
  3. ZELBORAF [Suspect]
     Active Substance: VEMURAFENIB
     Route: 048

REACTIONS (13)
  - Cough [Unknown]
  - Dizziness [Unknown]
  - Rash [Unknown]
  - Rash [Recovered/Resolved]
  - Alopecia [Unknown]
  - Furuncle [Unknown]
  - Melanocytic naevus [Unknown]
  - Haemorrhage [Unknown]
  - Koilonychia [Unknown]
  - Hepatic enzyme increased [Recovered/Resolved]
  - Diarrhoea [Unknown]
  - Pain in extremity [Not Recovered/Not Resolved]
  - Sunburn [Unknown]
